FAERS Safety Report 21578095 (Version 1)
Quarter: 2022Q4

REPORT INFORMATION
  Report Type: Spontaneous
  Country: BR (occurrence: BR)
  Receive Date: 20221110
  Receipt Date: 20221110
  Transmission Date: 20230113
  Serious: Yes (Hospitalization)
  Sender: FDA-Public Use
  Company Number: BR-UCBSA-2022064516

PATIENT
  Age: 45 Year
  Sex: Male
  Weight: 85 kg

DRUGS (4)
  1. KEPPRA [Suspect]
     Active Substance: LEVETIRACETAM
     Indication: Product used for unknown indication
     Dosage: 750 MILLIGRAM, ONCE DAILY (QD)
     Route: 048
     Dates: start: 20220423, end: 20220423
  2. TEMODAL [Suspect]
     Active Substance: TEMOZOLOMIDE
     Indication: Glioblastoma
     Dosage: 390 MILLIGRAM, ONCE DAILY (QD)
     Route: 048
     Dates: end: 20220330
  3. TEMODAL [Suspect]
     Active Substance: TEMOZOLOMIDE
     Dosage: 390 MILLIGRAM, ONCE DAILY (QD)
     Route: 048
     Dates: start: 20220414, end: 20220418
  4. TEMODAL [Suspect]
     Active Substance: TEMOZOLOMIDE
     Dosage: 390 MILLIGRAM, ONCE DAILY (QD)
     Route: 048
     Dates: start: 20220512, end: 20220516

REACTIONS (5)
  - Erythema [Recovered/Resolved]
  - Skin ulcer [Recovered/Resolved]
  - Pyrexia [Recovered/Resolved]
  - Photosensitivity reaction [Recovered/Resolved]
  - Product use issue [Unknown]

NARRATIVE: CASE EVENT DATE: 20220423
